FAERS Safety Report 25612445 (Version 1)
Quarter: 2025Q3

REPORT INFORMATION
  Report Type: Spontaneous
  Country: EU (occurrence: EU)
  Receive Date: 20250728
  Receipt Date: 20250728
  Transmission Date: 20251021
  Serious: Yes (Other)
  Sender: PFIZER
  Company Number: EU-PFIZER INC-202500150533

PATIENT
  Age: 82 Year
  Sex: Male

DRUGS (1)
  1. TAVOR (LORAZEPAM) [Suspect]
     Active Substance: LORAZEPAM

REACTIONS (4)
  - Drug dependence [Unknown]
  - Syncope [Unknown]
  - Headache [Unknown]
  - Dizziness [Unknown]
